FAERS Safety Report 15905090 (Version 1)
Quarter: 2019Q1

REPORT INFORMATION
  Report Type: Spontaneous
  Country: FR (occurrence: FR)
  Receive Date: 20190204
  Receipt Date: 20190204
  Transmission Date: 20190417
  Serious: Yes (Disabling)
  Sender: FDA-Public Use
  Company Number: FR-ACCORD-105149

PATIENT
  Age: 49 Year
  Sex: Female

DRUGS (3)
  1. PRAVASTATIN. [Suspect]
     Active Substance: PRAVASTATIN
     Indication: PRODUCT USED FOR UNKNOWN INDICATION
     Route: 048
  2. KIVEXA [Suspect]
     Active Substance: ABACAVIR SULFATE\LAMIVUDINE
     Indication: HIV TEST POSITIVE
     Route: 048
  3. VIRAMUNE [Suspect]
     Active Substance: NEVIRAPINE
     Indication: HIV TEST POSITIVE
     Route: 048

REACTIONS (2)
  - Tendon disorder [Not Recovered/Not Resolved]
  - Enthesopathy [Not Recovered/Not Resolved]

NARRATIVE: CASE EVENT DATE: 2016
